FAERS Safety Report 11142245 (Version 1)
Quarter: 2015Q2

REPORT INFORMATION
  Report Type: Spontaneous
  Country: US (occurrence: US)
  Receive Date: 20150527
  Receipt Date: 20150527
  Transmission Date: 20150821
  Serious: No
  Sender: FDA-Public Use
  Company Number: US-TARO-2014TAR00297

PATIENT
  Sex: Female

DRUGS (1)
  1. TERCONAZOLE VAGINAL CREAM 0.8% [Suspect]
     Active Substance: TERCONAZOLE
     Indication: FUNGAL INFECTION
     Route: 067

REACTIONS (2)
  - Vulvovaginal burning sensation [Unknown]
  - Nausea [Unknown]
